FAERS Safety Report 5817636-3 (Version None)
Quarter: 2008Q3

REPORT INFORMATION
  Report Type: 
  Country: None (occurrence: None)
  Receive Date: 20080722
  Receipt Date: 20080710
  Transmission Date: 20090109
  Serious: Yes (Hospitalization)
  Sender: FDA-Public Use
  Company Number: FR-ROCHE-575473

PATIENT
  Sex: Female

DRUGS (12)
  1. ROCEPHIN [Suspect]
     Indication: DRUG USE FOR UNKNOWN INDICATION
     Dosage: FORM: INJECTABLE SOLUTION
     Route: 065
     Dates: start: 20080601, end: 20080625
  2. PREVISCAN [Suspect]
     Indication: DRUG USE FOR UNKNOWN INDICATION
     Dosage: DOSE: 1/4 TABLET THE EVEN DAYS. 1/2 TABLETS THE ODD DAYS
     Route: 048
     Dates: end: 20080625
  3. ANTIVITAMIN K [Concomitant]
  4. BRONCHOKOD [Concomitant]
  5. DAFLON 500 [Concomitant]
  6. ISKEDYL [Concomitant]
  7. LUBENTYL [Concomitant]
  8. OMEPRAZOLE [Concomitant]
  9. PAROXETINE HCL [Concomitant]
  10. INDAPAMIDE [Concomitant]
  11. RENUTRYL [Concomitant]
  12. NITROGLYCERIN [Concomitant]

REACTIONS (4)
  - INTERNATIONAL NORMALISED RATIO INCREASED [None]
  - OVERDOSE [None]
  - RECTAL HAEMORRHAGE [None]
  - RECTAL ULCER [None]
